FAERS Safety Report 20194575 (Version 1)
Quarter: 2021Q4

REPORT INFORMATION
  Report Type: Spontaneous
  Country: US (occurrence: None)
  Receive Date: 20211216
  Receipt Date: 20211216
  Transmission Date: 20220303
  Serious: Yes (Other)
  Sender: FDA-Public Use
  Company Number: None

PATIENT
  Sex: Male

DRUGS (14)
  1. HUMIRA [Suspect]
     Active Substance: ADALIMUMAB
     Indication: Rheumatoid arthritis
     Route: 058
     Dates: start: 20210707
  2. ASPIRIN [Concomitant]
     Active Substance: ASPIRIN
  3. COLESTIPOL [Concomitant]
  4. FOLIC ACID [Concomitant]
     Active Substance: FOLIC ACID
  5. GLIMEPIRIDE [Concomitant]
     Active Substance: GLIMEPIRIDE
  6. IBUPROFEN [Concomitant]
     Active Substance: IBUPROFEN
  7. JANUVIA [Concomitant]
     Active Substance: SITAGLIPTIN PHOSPHATE
  8. LISINOPRIL [Suspect]
     Active Substance: LISINOPRIL
  9. METFORMIN [Concomitant]
     Active Substance: METFORMIN HYDROCHLORIDE
  10. METHOTREXATE [Concomitant]
     Active Substance: METHOTREXATE
  11. NORTRIPTYLINE [Concomitant]
     Active Substance: NORTRIPTYLINE
  12. OMEPRAZOLE [Concomitant]
     Active Substance: OMEPRAZOLE
  13. POTASSIUM POW CITRATE [Concomitant]
  14. SILODOSIN [Concomitant]
     Active Substance: SILODOSIN

REACTIONS (2)
  - Rheumatoid arthritis [None]
  - Groin pain [None]
